FAERS Safety Report 16414391 (Version 1)
Quarter: 2019Q2

REPORT INFORMATION
  Report Type: Spontaneous
  Country: US (occurrence: US)
  Receive Date: 20190611
  Receipt Date: 20190611
  Transmission Date: 20190711
  Serious: Yes (Death, Life-Threatening, Hospitalization, Other)
  Sender: FDA-Public Use
  Company Number: US-MYLANLABS-2019M1055062

PATIENT
  Age: 44 Year
  Sex: Female

DRUGS (6)
  1. VASOPRESSIN. [Suspect]
     Active Substance: VASOPRESSIN
     Indication: PRODUCT USED FOR UNKNOWN INDICATION
     Dosage: MAXIMUM DOSE
     Route: 065
  2. SODIUM CHLORIDE. [Suspect]
     Active Substance: SODIUM CHLORIDE
     Indication: PRODUCT USED FOR UNKNOWN INDICATION
     Dosage: ADMINISTERED VIA A CONTAMINATED IMPROPER IV ACCESS CATHETER PLACED BY A MEDICALLY UNTRAINED PERSON
     Route: 065
  3. EPINEPHRINE. [Suspect]
     Active Substance: EPINEPHRINE
     Indication: PRODUCT USED FOR UNKNOWN INDICATION
     Dosage: MAXIMUM DOSE
     Route: 065
  4. PHENYLEPHRINE [Suspect]
     Active Substance: PHENYLEPHRINE\PHENYLEPHRINE HYDROCHLORIDE
     Indication: PRODUCT USED FOR UNKNOWN INDICATION
     Dosage: MAXIMUM DOSE
     Route: 065
  5. NOREPINEPHRINE. [Suspect]
     Active Substance: NOREPINEPHRINE
     Indication: PRODUCT USED FOR UNKNOWN INDICATION
     Dosage: MAXIMUM DOSE
     Route: 065
  6. BICARBONATE [Suspect]
     Active Substance: SODIUM BICARBONATE
     Indication: ACIDOSIS
     Route: 050

REACTIONS (17)
  - Expired product administered [Fatal]
  - Complication associated with device [Fatal]
  - Encephalitis [Not Recovered/Not Resolved]
  - Catheter site erythema [Not Recovered/Not Resolved]
  - Bacterial pericarditis [Not Recovered/Not Resolved]
  - Cerebral haemorrhage [Not Recovered/Not Resolved]
  - Cerebellar haemorrhage [Not Recovered/Not Resolved]
  - Staphylococcal sepsis [Fatal]
  - Drug ineffective [Fatal]
  - Exposure via contaminated device [Fatal]
  - Cerebral infarction [Not Recovered/Not Resolved]
  - Renal haemorrhage [Not Recovered/Not Resolved]
  - Device related infection [Fatal]
  - Septic embolus [Not Recovered/Not Resolved]
  - Myocardial infarction [Not Recovered/Not Resolved]
  - Septic shock [Fatal]
  - Brain stem haemorrhage [Not Recovered/Not Resolved]
